FAERS Safety Report 4291929-6 (Version None)
Quarter: 2004Q1

REPORT INFORMATION
  Report Type: 
  Country: None (occurrence: None)
  Receive Date: 20040126
  Receipt Date: 20030909
  Transmission Date: 20041129
  Serious: No
  Sender: FDA-Public Use
  Company Number: USA030946753

PATIENT
  Age: 67 Year
  Sex: Female

DRUGS (1)
  1. FORTEO [Suspect]
     Indication: PATHOLOGICAL FRACTURE
     Dosage: 20 UG/IN THE MORNING
     Dates: start: 20030801

REACTIONS (2)
  - DIARRHOEA [None]
  - FLATULENCE [None]
